FAERS Safety Report 5970035-6 (Version None)
Quarter: 2008Q4

REPORT INFORMATION
  Report Type: 
  Country: None (occurrence: None)
  Receive Date: 20081126
  Receipt Date: 20081113
  Transmission Date: 20090506
  Serious: Yes (Hospitalization)
  Sender: FDA-Public Use
  Company Number: TW-AMGEN-US320258

PATIENT
  Age: 33 Year
  Sex: Female

DRUGS (19)
  1. ENBREL [Suspect]
     Indication: RHEUMATOID ARTHRITIS
     Route: 058
     Dates: start: 20051221, end: 20071205
  2. HYDROXYCHLOROQUINE SULFATE [Concomitant]
     Indication: RHEUMATOID ARTHRITIS
     Dates: start: 20071226, end: 20080122
  3. HYDROXYCHLOROQUINE SULFATE [Concomitant]
     Dates: start: 20080123
  4. CELEBREX [Concomitant]
     Indication: RHEUMATOID ARTHRITIS
     Dates: start: 20051123
  5. PREDNISOLONE [Concomitant]
     Indication: RHEUMATOID ARTHRITIS
     Dates: start: 20080123
  6. ZOLPIDEM [Concomitant]
     Indication: INSOMNIA
     Dates: start: 20051130, end: 20060214
  7. ACETAMINOPHEN [Concomitant]
     Indication: RHEUMATOID ARTHRITIS
     Dates: start: 20051123, end: 20051220
  8. ACETAMINOPHEN [Concomitant]
     Dates: start: 20051221, end: 20060103
  9. ACETAMINOPHEN [Concomitant]
     Dates: start: 20060104, end: 20060829
  10. TRAMADOL HCL [Concomitant]
     Indication: RHEUMATOID ARTHRITIS
     Dosage: 50 MG PER DAY AS NEEDED
     Dates: start: 20051123, end: 20060214
  11. TRAMADOL HCL [Concomitant]
     Dosage: 100 MG PER DAY AS NEEDED
     Dates: start: 20070422
  12. ULTRACET [Concomitant]
     Indication: RHEUMATOID ARTHRITIS
     Dates: start: 20070620, end: 20070821
  13. XANAX [Concomitant]
     Indication: INSOMNIA
     Dates: start: 20051221
  14. METHOTREXATE [Concomitant]
     Indication: RHEUMATOID ARTHRITIS
     Dates: start: 20071226, end: 20080122
  15. METHOTREXATE [Concomitant]
     Dates: start: 20080123, end: 20080415
  16. METHOTREXATE [Concomitant]
     Dates: start: 20080416, end: 20080715
  17. METHOTREXATE [Concomitant]
     Dates: start: 20080815
  18. DICLOFENAC SODIUM [Concomitant]
     Indication: RHEUMATOID ARTHRITIS
     Dates: start: 20080416, end: 20080515
  19. DICLOFENAC SODIUM [Concomitant]

REACTIONS (1)
  - TUBERCULOSIS [None]
